FAERS Safety Report 7995511-6 (Version None)
Quarter: 2011Q4

REPORT INFORMATION
  Report Type: 
  Country: None (occurrence: None)
  Receive Date: 20111220
  Receipt Date: 20111208
  Transmission Date: 20120403
  Serious: Yes (Hospitalization, Other)
  Sender: FDA-Public Use
  Company Number: JP-ALEXION PHARMACEUTICALS INC.-A201101327

PATIENT
  Age: 83 Year
  Sex: Female

DRUGS (12)
  1. LANIRAPID [Concomitant]
     Dosage: UNK
  2. GLYCYRON [Concomitant]
     Dosage: UNK
     Dates: start: 20110428
  3. MINOPHAGEN C [Concomitant]
     Dosage: UNK
     Dates: start: 20110826
  4. CANDESARTAN CILEXETIL [Concomitant]
     Dosage: UNK
     Dates: start: 20101207
  5. URSO 250 [Concomitant]
     Dosage: UNK
     Dates: start: 20110912
  6. SOLIRIS [Suspect]
     Dosage: 900 MG, Q2W
     Route: 042
  7. CARVEDILOL [Concomitant]
     Dosage: UNK
  8. FAMOTIDINE [Concomitant]
     Dosage: UNK
  9. PENICILLIN [Concomitant]
     Dosage: UNK
     Dates: start: 20110826
  10. MUCOSTA [Concomitant]
     Dosage: UNK
  11. SOLIRIS [Suspect]
     Indication: PAROXYSMAL NOCTURNAL HAEMOGLOBINURIA
     Dosage: UNK
     Route: 042
     Dates: start: 20101011
  12. LASIX [Concomitant]
     Dosage: UNK

REACTIONS (5)
  - EXTRAVASCULAR HAEMOLYSIS [None]
  - CONDITION AGGRAVATED [None]
  - CHOLANGITIS [None]
  - CHOLELITHIASIS [None]
  - RENAL FAILURE ACUTE [None]
